FAERS Safety Report 20973314 (Version 1)
Quarter: 2022Q2

REPORT INFORMATION
  Report Type: Report from Study
  Country: JP (occurrence: JP)
  Receive Date: 20220617
  Receipt Date: 20220617
  Transmission Date: 20220721
  Serious: Yes (Other)
  Sender: FDA-Public Use
  Company Number: JP-CELLTRION INC.-2022JP009337

PATIENT

DRUGS (9)
  1. INFLIXIMAB-DYYB [Suspect]
     Active Substance: INFLIXIMAB-DYYB
     Indication: Colitis ulcerative
     Dosage: 420 MILLIGRAM (WEIGHT: 81.5 KG)
     Route: 041
     Dates: start: 20191005, end: 20191005
  2. INFLIXIMAB-DYYB [Suspect]
     Active Substance: INFLIXIMAB-DYYB
     Dosage: 415 MILLIGRAM (WEIGHT: 82.9 KG)
     Route: 041
     Dates: start: 20191201, end: 20191201
  3. INFLIXIMAB-DYYB [Suspect]
     Active Substance: INFLIXIMAB-DYYB
     Dosage: 430 MILLIGRAM (WEIGHT: 86.0 KG)
     Route: 041
     Dates: start: 20200125, end: 20200125
  4. INFLIXIMAB-DYYB [Suspect]
     Active Substance: INFLIXIMAB-DYYB
     Dosage: 435 MILLIGRAM (WEIGHT: 86.9 KG)
     Route: 041
     Dates: start: 20200516, end: 20200516
  5. INFLIXIMAB-DYYB [Suspect]
     Active Substance: INFLIXIMAB-DYYB
     Dosage: 435 MILLIGRAM (WEIGHT: 85.6 KG)
     Route: 041
     Dates: start: 20201107, end: 20201107
  6. INFLIXIMAB-DYYB [Suspect]
     Active Substance: INFLIXIMAB-DYYB
     Dosage: 435 MILLIGRAM (WEIGHT: 86.6 KG)
     Route: 041
     Dates: start: 20211019, end: 20211019
  7. MESALAMINE [Concomitant]
     Active Substance: MESALAMINE
     Dosage: 4800 MILLIGRAM/DAY
     Route: 048
     Dates: start: 20180327
  8. AZATHIOPRINE [Concomitant]
     Active Substance: AZATHIOPRINE
     Dosage: 50 MILLIGRAM/DAY
     Route: 048
     Dates: start: 20180917
  9. SULFASALAZINE [Concomitant]
     Active Substance: SULFASALAZINE
     Dosage: 2000 MILLIGRAM/DAY
     Route: 048
     Dates: start: 20190305

REACTIONS (8)
  - COVID-19 [Recovered/Resolved]
  - Seasonal allergy [Recovered/Resolved]
  - Anal fissure [Unknown]
  - Seasonal allergy [Not Recovered/Not Resolved]
  - Lymphadenopathy [Recovered/Resolved]
  - Rash [Unknown]
  - Overdose [Unknown]
  - Off label use [Unknown]

NARRATIVE: CASE EVENT DATE: 20200223
